FAERS Safety Report 24683991 (Version 1)
Quarter: 2024Q4

REPORT INFORMATION
  Report Type: Spontaneous
  Country: FR (occurrence: FR)
  Receive Date: 20241202
  Receipt Date: 20241202
  Transmission Date: 20250114
  Serious: Yes (Hospitalization)
  Sender: SANOFI AVENTIS
  Company Number: None

PATIENT
  Age: 44 Year
  Sex: Female

DRUGS (10)
  1. TRAMADOL HYDROCHLORIDE [Suspect]
     Active Substance: TRAMADOL HYDROCHLORIDE
     Indication: Product used for unknown indication
     Dosage: UNK
     Route: 065
  2. METHADONE HYDROCHLORIDE [Suspect]
     Active Substance: METHADONE HYDROCHLORIDE
     Indication: Product used for unknown indication
     Dosage: UNK
     Route: 042
     Dates: start: 2005
  3. ALPRAZOLAM [Suspect]
     Active Substance: ALPRAZOLAM
     Indication: Product used for unknown indication
     Dosage: UNK
     Route: 065
  4. ZOLPIDEM TARTRATE [Suspect]
     Active Substance: ZOLPIDEM TARTRATE
     Indication: Product used for unknown indication
     Dosage: 20 MG AT NIGHT
     Route: 048
     Dates: start: 2005
  5. COCAINE [Suspect]
     Active Substance: COCAINE
     Indication: Product used for unknown indication
     Dosage: REGULAR CONSUMPTION SINCE 2019: 1.5G/3 DAYS
     Route: 042
     Dates: start: 1997
  6. COCAINE [Suspect]
     Active Substance: COCAINE
     Dosage: UNK
     Route: 055
     Dates: start: 1997
  7. HEROIN [Suspect]
     Active Substance: DIAMORPHINE
     Indication: Product used for unknown indication
     Dosage: UNK
     Route: 042
  8. HEROIN [Suspect]
     Active Substance: DIAMORPHINE
     Route: 045
  9. ADZENYS ER [Suspect]
     Active Substance: AMPHETAMINE
     Indication: Product used for unknown indication
     Dosage: UNK
     Route: 065
  10. ALCOHOL [Suspect]
     Active Substance: ALCOHOL
     Indication: Product used for unknown indication
     Dosage: ABOUT 8U/D
     Route: 048
     Dates: start: 2019

REACTIONS (6)
  - Back pain [Recovering/Resolving]
  - Injection site abscess [Recovering/Resolving]
  - Brachial artery entrapment syndrome [Not Recovered/Not Resolved]
  - Intervertebral discitis [Recovering/Resolving]
  - Drug abuse [Not Recovered/Not Resolved]
  - Off label use [Not Recovered/Not Resolved]

NARRATIVE: CASE EVENT DATE: 19950101
